FAERS Safety Report 16962120 (Version 2)
Quarter: 2019Q4

REPORT INFORMATION
  Report Type: Spontaneous
  Country: US (occurrence: US)
  Receive Date: 20191025
  Receipt Date: 20191030
  Transmission Date: 20200122
  Serious: No
  Sender: FDA-Public Use
  Company Number: US-009507513-1910USA014983

PATIENT
  Age: 16 Year
  Sex: Female

DRUGS (1)
  1. NEXPLANON [Suspect]
     Active Substance: ETONOGESTREL
     Indication: CONTRACEPTION
     Dosage: ONE IMPLANT EVERY 3 YEARS
     Route: 059
     Dates: start: 20191014

REACTIONS (2)
  - Implant site pruritus [Unknown]
  - Implant site reaction [Unknown]

NARRATIVE: CASE EVENT DATE: 20191021
